FAERS Safety Report 14646101 (Version 1)
Quarter: 2018Q1

REPORT INFORMATION
  Report Type: Report from Study
  Country: CO (occurrence: CO)
  Receive Date: 20180316
  Receipt Date: 20180316
  Transmission Date: 20180509
  Serious: Yes (Other)
  Sender: FDA-Public Use
  Company Number: CO-AMGEN-COLSL2017158992

PATIENT
  Age: 38 Year
  Sex: Male

DRUGS (2)
  1. XGEVA [Suspect]
     Active Substance: DENOSUMAB
     Indication: BONE DISORDER
     Dosage: 120 MG, QMO
     Route: 058
     Dates: start: 20170809, end: 20180215
  2. XGEVA [Suspect]
     Active Substance: DENOSUMAB
     Indication: NEOPLASM MALIGNANT

REACTIONS (2)
  - Surgery [Unknown]
  - Influenza [Recovering/Resolving]

NARRATIVE: CASE EVENT DATE: 20170930
